FAERS Safety Report 22007787 (Version 2)
Quarter: 2023Q1

REPORT INFORMATION
  Report Type: Spontaneous
  Country: GB (occurrence: GB)
  Receive Date: 20230218
  Receipt Date: 20230301
  Transmission Date: 20230417
  Serious: Yes (Death, Hospitalization, Other)
  Sender: FDA-Public Use
  Company Number: None

PATIENT
  Age: 77 Year
  Sex: Female

DRUGS (1)
  1. AMLODIPINE [Suspect]
     Active Substance: AMLODIPINE BESYLATE
     Indication: Product used for unknown indication

REACTIONS (5)
  - Product dispensing error [Unknown]
  - Palpitations [Fatal]
  - Acidosis [Unknown]
  - Blood lactic acid increased [Unknown]
  - Malaise [Unknown]

NARRATIVE: CASE EVENT DATE: 20230205
